FAERS Safety Report 18384470 (Version 1)
Quarter: 2020Q4

REPORT INFORMATION
  Report Type: Spontaneous
  Country: US (occurrence: US)
  Receive Date: 20201014
  Receipt Date: 20201014
  Transmission Date: 20210114
  Serious: No
  Sender: FDA-Public Use
  Company Number: US-KALEO, INC.-2020KL000022

PATIENT
  Age: 61 Year
  Sex: Female

DRUGS (21)
  1. ELIQUIS [Concomitant]
     Active Substance: APIXABAN
     Indication: PROPHYLAXIS
  2. MYRBETRIQ [Concomitant]
     Active Substance: MIRABEGRON
     Indication: HYPERTONIC BLADDER
  3. NASONEX [Concomitant]
     Active Substance: MOMETASONE FUROATE
     Indication: ALLERGY TO ANIMAL
     Route: 045
  4. RETAINE [Concomitant]
     Active Substance: HYPROMELLOSE 2910 (4000 MPA.S)
     Indication: DRY EYE
     Route: 047
  5. TURMERIC [Concomitant]
     Active Substance: HERBALS\TURMERIC
     Indication: HYPERTONIC BLADDER
  6. CALCIUM PLUS VITAMIN D [Concomitant]
     Active Substance: CALCIUM\VITAMIN D
     Indication: SUPPLEMENTATION THERAPY
     Dosage: 600/400
  7. CYMBALTA [Concomitant]
     Active Substance: DULOXETINE HYDROCHLORIDE
     Indication: BONE PAIN
  8. PROTONIX [Concomitant]
     Active Substance: PANTOPRAZOLE SODIUM
     Indication: GASTROOESOPHAGEAL REFLUX DISEASE
  9. VESICARE [Concomitant]
     Active Substance: SOLIFENACIN SUCCINATE
     Indication: HYPERTONIC BLADDER
  10. LIDOCAINE HYDROCORTISONE ALOE [Concomitant]
     Indication: HAEMORRHOIDS
     Dosage: 3-2.5%
  11. AUVI-Q [Suspect]
     Active Substance: EPINEPHRINE
     Dates: start: 20200208, end: 20200208
  12. CYMBALTA [Concomitant]
     Active Substance: DULOXETINE HYDROCHLORIDE
     Indication: FIBROMYALGIA
  13. TECFIDERA [Concomitant]
     Active Substance: DIMETHYL FUMARATE
     Indication: MULTIPLE SCLEROSIS
  14. RESTASIS [Concomitant]
     Active Substance: CYCLOSPORINE
     Indication: DRY EYE
     Route: 047
  15. FISH OIL [Concomitant]
     Active Substance: FISH OIL
     Indication: DRY EYE
  16. FISH OIL [Concomitant]
     Active Substance: FISH OIL
     Indication: SUPPLEMENTATION THERAPY
  17. AZELASTINE. [Concomitant]
     Active Substance: AZELASTINE HYDROCHLORIDE
     Indication: ALLERGY TO ANIMAL
     Route: 045
  18. FLAXSEED [Concomitant]
     Active Substance: FLAX SEED
     Indication: SUPPLEMENTATION THERAPY
  19. TOPROL SUCCINATE ER [Concomitant]
     Indication: SUPRAVENTRICULAR TACHYCARDIA
  20. TURMERIC [Concomitant]
     Active Substance: HERBALS\TURMERIC
     Indication: INCONTINENCE
  21. WOMEN^S MULTIVITAMIN WITH MINERAL [Concomitant]
     Indication: SUPPLEMENTATION THERAPY

REACTIONS (4)
  - Blood pressure increased [Recovered/Resolved]
  - Feeling abnormal [Recovered/Resolved]
  - Accidental exposure to product [Recovered/Resolved]
  - Feeling jittery [Recovered/Resolved]

NARRATIVE: CASE EVENT DATE: 20200208
